FAERS Safety Report 17868048 (Version 1)
Quarter: 2020Q2

REPORT INFORMATION
  Report Type: Spontaneous
  Country: DE (occurrence: DE)
  Receive Date: 20200605
  Receipt Date: 20200605
  Transmission Date: 20200714
  Serious: Yes (Other)
  Sender: FDA-Public Use
  Company Number: DE-JNJFOC-20200509241

PATIENT
  Age: 77 Year
  Sex: Female

DRUGS (2)
  1. REGAINE WOMAN 2% PR-008381 [Suspect]
     Active Substance: MINOXIDIL
     Indication: ALOPECIA
     Dosage: USED TWICE AS PER PRODUCT INFO
     Route: 065
     Dates: start: 20200402, end: 20200430
  2. REGAINE WOMAN 2% PR-008381 [Suspect]
     Active Substance: MINOXIDIL
     Route: 065

REACTIONS (2)
  - Application site pruritus [Recovered/Resolved]
  - Application site acne [Recovered/Resolved]

NARRATIVE: CASE EVENT DATE: 20200402
